FAERS Safety Report 11118044 (Version 1)
Quarter: 2015Q2

REPORT INFORMATION
  Report Type: Spontaneous
  Country: US (occurrence: None)
  Receive Date: 20150515
  Receipt Date: 20150515
  Transmission Date: 20150821
  Serious: Yes (Other)
  Sender: FDA-Public Use
  Company Number: None

PATIENT
  Sex: Female
  Weight: 40.5 kg

DRUGS (1)
  1. EXJADE [Suspect]
     Active Substance: DEFERASIROX
     Indication: IRON OVERLOAD
     Dosage: EXJADE 250MG ONE TABS DAILY PO
     Route: 048
     Dates: start: 20130903, end: 20150510

REACTIONS (2)
  - Pruritus [None]
  - Diarrhoea [None]
